FAERS Safety Report 4391889-3 (Version None)
Quarter: 2004Q3

REPORT INFORMATION
  Report Type: 
  Country: None (occurrence: None)
  Receive Date: 20040702
  Receipt Date: 20040317
  Transmission Date: 20050211
  Serious: Yes (Hospitalization)
  Sender: FDA-Public Use
  Company Number: 2004UW05298

PATIENT
  Age: 43 Year
  Sex: Male

DRUGS (2)
  1. CRESTOR [Suspect]
     Dosage: 10 MG DAILY PO
     Route: 048
  2. CYCLOSPORINE [Suspect]

REACTIONS (2)
  - BLOOD CREATININE INCREASED [None]
  - DYSPNOEA [None]
